FAERS Safety Report 4865029-8 (Version None)
Quarter: 2005Q4

REPORT INFORMATION
  Report Type: 
  Country: None (occurrence: None)
  Receive Date: 20051219
  Receipt Date: 20051209
  Transmission Date: 20060501
  Serious: Yes (Hospitalization)
  Sender: FDA-Public Use
  Company Number: 2005RR-01331

PATIENT
  Age: 61 Year
  Sex: Male

DRUGS (6)
  1. IBUPROFEN TABLETS [Suspect]
     Indication: GOUT
     Dosage: 400 MG, TID, ORAL
     Route: 048
     Dates: end: 20051118
  2. CLOPIDOGREL (CLOPIDOGREL) [Suspect]
     Indication: PROPHYLAXIS
     Dosage: 75 MG, QD, ORAL
     Route: 048
     Dates: end: 20051118
  3. SIMVASTATIN [Concomitant]
  4. ATENOLOL [Concomitant]
  5. FELODIPINE [Concomitant]
  6. ALLOPURINOL TABLETS (ALLOPURINOL) [Concomitant]

REACTIONS (2)
  - HAEMATEMESIS [None]
  - MELAENA [None]
